FAERS Safety Report 15248111 (Version 1)
Quarter: 2018Q3

REPORT INFORMATION
  Report Type: Spontaneous
  Country: US (occurrence: US)
  Receive Date: 20180714
  Receipt Date: 20180714
  Transmission Date: 20181010
  Serious: Yes (Disabling)
  Sender: FDA-Public Use
  Company Number: None

PATIENT
  Sex: Female

DRUGS (1)
  1. LEVAQUIN [Suspect]
     Active Substance: LEVOFLOXACIN

REACTIONS (17)
  - Toxicity to various agents [None]
  - Tendon pain [None]
  - Cognitive disorder [None]
  - Pain in extremity [None]
  - Gait disturbance [None]
  - Disorientation [None]
  - Walking aid user [None]
  - Suicidal ideation [None]
  - Subcutaneous abscess [None]
  - Arthralgia [None]
  - Rheumatoid arthritis [None]
  - Fatigue [None]
  - Joint swelling [None]
  - Depression [None]
  - Confusional state [None]
  - Drug hypersensitivity [None]
  - Sepsis [None]
